FAERS Safety Report 6657073-5 (Version None)
Quarter: 2010Q1

REPORT INFORMATION
  Report Type: 
  Country: None (occurrence: None)
  Receive Date: 20100330
  Receipt Date: 20100317
  Transmission Date: 20100710
  Serious: No
  Sender: FDA-Public Use
  Company Number: US-B.I. PHARMACEUTICALS,INC./RIDGEFIELD-2010-BP-03174BP

PATIENT
  Sex: Female

DRUGS (2)
  1. SPIRIVA [Suspect]
     Dosage: 18 MCG
     Route: 055
     Dates: start: 20070101
  2. TRAVATAN Z [Concomitant]
     Indication: GLAUCOMA
     Route: 031

REACTIONS (2)
  - ERYTHEMA OF EYELID [None]
  - OCULAR HYPERAEMIA [None]
